FAERS Safety Report 9297133 (Version 1)
Quarter: 2013Q2

REPORT INFORMATION
  Report Type: Spontaneous
  Country: US (occurrence: US)
  Receive Date: 20130520
  Receipt Date: 20130520
  Transmission Date: 20140414
  Serious: Yes (Hospitalization)
  Sender: FDA-Public Use
  Company Number: US-AMGEN-USASP2013033978

PATIENT
  Age: 14 Year
  Sex: Male
  Weight: 100 kg

DRUGS (3)
  1. NPLATE [Suspect]
     Indication: IDIOPATHIC THROMBOCYTOPENIC PURPURA
     Dosage: 1 MUG/KG, UNK
     Dates: start: 20130413
  2. NPLATE [Suspect]
     Dosage: 2 MUG/KG, UNK
     Dates: start: 20130427
  3. CORTICOSTEROIDS [Concomitant]
     Indication: EVANS SYNDROME

REACTIONS (2)
  - Myocarditis [Recovered/Resolved]
  - Drug ineffective [Unknown]
